FAERS Safety Report 5424984-8 (Version None)
Quarter: 2007Q3

REPORT INFORMATION
  Report Type: 
  Country: None (occurrence: None)
  Receive Date: 20070824
  Receipt Date: 20070817
  Transmission Date: 20080115
  Serious: Yes (Life-Threatening, Hospitalization)
  Sender: FDA-Public Use
  Company Number: B0484239A

PATIENT
  Age: 57 Year
  Sex: Male

DRUGS (6)
  1. AUGMENTIN '125' [Suspect]
     Indication: PROSTATITIS
     Dosage: 1G PER DAY
     Route: 048
     Dates: start: 20061218, end: 20061218
  2. TAVANIC [Concomitant]
     Indication: PROSTATITIS
     Route: 048
     Dates: start: 20061218
  3. LEVOTHYROXINE SODIUM [Concomitant]
     Indication: HYPOTHYROIDISM
  4. TAHOR [Concomitant]
     Dosage: 20MG UNKNOWN
  5. EZETROL [Concomitant]
  6. ATARAX [Concomitant]

REACTIONS (11)
  - ABDOMINAL PAIN UPPER [None]
  - ANAPHYLACTIC SHOCK [None]
  - ANGIOEDEMA [None]
  - BLOOD PRESSURE ABNORMAL [None]
  - DIARRHOEA [None]
  - GENERALISED ERYTHEMA [None]
  - HYPERSENSITIVITY [None]
  - LOSS OF CONSCIOUSNESS [None]
  - MALAISE [None]
  - PAINFUL RESPIRATION [None]
  - VOMITING [None]
